FAERS Safety Report 13186669 (Version 1)
Quarter: 2017Q1

REPORT INFORMATION
  Report Type: Spontaneous
  Country: US (occurrence: US)
  Receive Date: 20170205
  Receipt Date: 20170205
  Transmission Date: 20170428
  Serious: No
  Sender: FDA-Public Use
  Company Number: US-ASTRAZENECA-2017SE09841

PATIENT
  Age: 83 Year
  Sex: Female

DRUGS (14)
  1. COQ10 [Concomitant]
     Active Substance: UBIDECARENONE
  2. MEGA RED SUPER FISH OIL [Concomitant]
  3. 5 MEDICATIONS NOT SPECIFIED [Concomitant]
     Indication: CARDIAC DISORDER
  4. FOLIC ACID. [Concomitant]
     Active Substance: FOLIC ACID
  5. MOVANTIK [Suspect]
     Active Substance: NALOXEGOL OXALATE
     Indication: CONSTIPATION
     Route: 048
     Dates: start: 20170124
  6. CENTRUM SILVER [Concomitant]
     Active Substance: MINERALS\VITAMINS
  7. TRAMADOL. [Concomitant]
     Active Substance: TRAMADOL
     Indication: PAIN
     Dosage: 2000
  8. CRANBERRY. [Concomitant]
     Active Substance: CRANBERRY
  9. CALCIUM [Concomitant]
     Active Substance: CALCIUM
  10. BIOTIN [Concomitant]
     Active Substance: BIOTIN
  11. OSTEO BI FLEX [Concomitant]
  12. OPIOID NOT SPECIFIED [Concomitant]
  13. VITAMIN D1 [Concomitant]
     Dosage: 2000
  14. VITAMIN E [Concomitant]
     Active Substance: .ALPHA.-TOCOPHEROL

REACTIONS (4)
  - Drug administration error [Unknown]
  - Feeling abnormal [Unknown]
  - Nausea [Unknown]
  - Anxiety [Unknown]

NARRATIVE: CASE EVENT DATE: 20170124
